FAERS Safety Report 4897350-1 (Version None)
Quarter: 2005Q4

REPORT INFORMATION
  Report Type: 
  Country: None (occurrence: None)
  Receive Date: 20051223
  Receipt Date: 20051110
  Transmission Date: 20060501
  Serious: No
  Sender: FDA-Public Use
  Company Number: 05P-163-0316935-00

PATIENT
  Age: 54 Year
  Sex: Female
  Weight: 86.1834 kg

DRUGS (5)
  1. HUMIRA [Suspect]
     Indication: RHEUMATOID ARTHRITIS
     Dosage: 40 MG, 1 IN 2 WK, SUBCUTANEOUS
     Route: 058
     Dates: start: 20041212, end: 20051021
  2. PREDNISONE [Concomitant]
  3. TOMETIN [Concomitant]
  4. FISH OIL [Concomitant]
  5. MULTIVITAMIN [Concomitant]

REACTIONS (2)
  - RASH ERYTHEMATOUS [None]
  - URTICARIA [None]
